FAERS Safety Report 7742134-X (Version None)
Quarter: 2011Q3

REPORT INFORMATION
  Report Type: 
  Country: None (occurrence: None)
  Receive Date: 20110912
  Receipt Date: 20110329
  Transmission Date: 20111222
  Serious: No
  Sender: FDA-Public Use
  Company Number: US-BAYER-2011-028376

PATIENT
  Sex: Male

DRUGS (1)
  1. MIRENA [Suspect]
     Indication: PRODUCT USED FOR UNKNOWN INDICATION
     Dosage: 20 ?G, QD
     Route: 015

REACTIONS (3)
  - DEVICE DISLOCATION [None]
  - PENIS INJURY [None]
  - PENILE PAIN [None]
